FAERS Safety Report 9423732 (Version 1)
Quarter: 2013Q3

REPORT INFORMATION
  Report Type: Report from Study
  Country: AT (occurrence: AT)
  Receive Date: 20130728
  Receipt Date: 20130728
  Transmission Date: 20140515
  Serious: Yes (Death, Life-Threatening, Hospitalization)
  Sender: FDA-Public Use
  Company Number: PHHO2013AT009750

PATIENT
  Age: 63 Year
  Sex: Female

DRUGS (17)
  1. EVEROLIMUS [Suspect]
     Indication: RENAL CELL CARCINOMA
     Dosage: 10 MG, QD
     Route: 048
     Dates: start: 20130507, end: 20130528
  2. PANADOL [Concomitant]
     Dosage: UNK
  3. ALPRAZOLAM [Concomitant]
  4. DOCUSATE SODIUM\SENNOSIDES [Concomitant]
     Dosage: UNK
  5. ENOXAPARIN [Concomitant]
     Dosage: UNK
     Dates: start: 201207
  6. METOCLOPRAMIDE [Concomitant]
  7. MIRTAZAPINE [Concomitant]
  8. MS CONTIN [Concomitant]
  9. NAPROXEN [Concomitant]
  10. ENDONE [Concomitant]
  11. TEMAZEPAM [Concomitant]
  12. CHOLECALCIFEROL [Concomitant]
  13. NORMAL SALINE [Concomitant]
  14. ONDANSETRON [Concomitant]
  15. CEFTRIAXONE [Concomitant]
  16. METRONIDAZOLE [Concomitant]
  17. MORPHINE [Concomitant]

REACTIONS (1)
  - Intestinal ischaemia [Fatal]
